FAERS Safety Report 5694400-X (Version None)
Quarter: 2008Q2

REPORT INFORMATION
  Report Type: 
  Country: None (occurrence: None)
  Receive Date: 20080402
  Receipt Date: 20080316
  Transmission Date: 20081010
  Serious: Yes (Hospitalization)
  Sender: FDA-Public Use
  Company Number: AU-1165413

PATIENT
  Age: 79 Year
  Sex: Female

DRUGS (2)
  1. TOBRAMYCIN SULFATE [Suspect]
     Dosage: OPHTHALMIC
     Route: 047
  2. PREDNEFRIN (PREDNEFRIN) [Concomitant]

REACTIONS (3)
  - BLOOD PRESSURE SYSTOLIC INCREASED [None]
  - BRONCHOSPASM [None]
  - RESPIRATORY DISTRESS [None]
